FAERS Safety Report 7899053-8 (Version None)
Quarter: 2011Q4

REPORT INFORMATION
  Report Type: 
  Country: None (occurrence: None)
  Receive Date: 20111107
  Receipt Date: 20111028
  Transmission Date: 20120403
  Serious: Yes (Hospitalization, Disabling, Other)
  Sender: FDA-Public Use
  Company Number: DE-ROCHE-GNE323867

PATIENT
  Sex: Male
  Weight: 80 kg

DRUGS (5)
  1. ACTRAPID [Concomitant]
  2. RAMIPRIL [Concomitant]
  3. BISOPROLOL FUMARATE [Concomitant]
  4. LUCENTIS [Suspect]
     Indication: DIABETIC RETINAL OEDEMA
     Route: 050
     Dates: start: 20110810
  5. MOXONIDINE [Concomitant]

REACTIONS (5)
  - VITREOUS DISORDER [None]
  - HYPOPYON [None]
  - BLINDNESS [None]
  - OCULAR HYPERAEMIA [None]
  - ENDOPHTHALMITIS [None]
